FAERS Safety Report 21681469 (Version 1)
Quarter: 2022Q4

REPORT INFORMATION
  Report Type: Report from Study
  Country: US (occurrence: US)
  Receive Date: 20221205
  Receipt Date: 20221205
  Transmission Date: 20230113
  Serious: Yes (Hospitalization)
  Sender: FDA-Public Use
  Company Number: US-GLAXOSMITHKLINE-US2022GSK179605

PATIENT

DRUGS (1)
  1. BELANTAMAB MAFODOTIN [Suspect]
     Active Substance: BELANTAMAB MAFODOTIN
     Indication: Plasmablastic lymphoma
     Dosage: 208 MG, SINGLE, ,(2.5 MG/KG) ON DAY 1 OF 21 DAY CYCLE
     Route: 042
     Dates: start: 20211124, end: 20211216

REACTIONS (2)
  - Enterocolitis infectious [Unknown]
  - Pneumonia [Unknown]

NARRATIVE: CASE EVENT DATE: 20220101
